FAERS Safety Report 9785443 (Version 1)
Quarter: 2013Q4

REPORT INFORMATION
  Report Type: Spontaneous
  Country: US (occurrence: US)
  Receive Date: 20131227
  Receipt Date: 20131227
  Transmission Date: 20140711
  Serious: Yes (Other)
  Sender: FDA-Public Use
  Company Number: US-BAYER-2013-155159

PATIENT
  Sex: Male

DRUGS (1)
  1. BAYER CHEWABLE LOW DOSE BABY ASPIRIN TABLET CHERRY [Suspect]
     Indication: ISCHAEMIC HEART DISEASE PROPHYLAXIS
     Dosage: UNK DF, QD
     Route: 048

REACTIONS (2)
  - Gastric haemorrhage [Recovered/Resolved]
  - Abdominal discomfort [Recovered/Resolved]
